FAERS Safety Report 7122046-5 (Version None)
Quarter: 2010Q4

REPORT INFORMATION
  Report Type: 
  Country: None (occurrence: None)
  Receive Date: 20101124
  Receipt Date: 20101115
  Transmission Date: 20110411
  Serious: Yes (Other)
  Sender: FDA-Public Use
  Company Number: B0684166A

PATIENT
  Sex: Female
  Weight: 56 kg

DRUGS (4)
  1. LAPATINIB [Suspect]
     Indication: BREAST CANCER
     Dosage: 150MG PER DAY
     Route: 048
  2. EPIRUBICIN [Suspect]
     Indication: BREAST CANCER
     Dosage: 110MG EVERY 3 WEEKS
     Route: 042
     Dates: start: 20100823
  3. FLUOROURACIL [Suspect]
     Indication: BREAST CANCER
     Dosage: 950MG EVERY 3 WEEKS
     Route: 042
     Dates: start: 20100823
  4. CYCLOPHOSPHAMIDE [Suspect]
     Indication: BREAST CANCER
     Dosage: 950MG EVERY 3 WEEKS
     Route: 042
     Dates: start: 20100823

REACTIONS (1)
  - NEUTROPENIA [None]
